FAERS Safety Report 10409837 (Version 1)
Quarter: 2014Q3

REPORT INFORMATION
  Report Type: Spontaneous
  Country: NL (occurrence: None)
  Receive Date: 20140703
  Receipt Date: 20140703
  Transmission Date: 20150326
  Serious: Yes (Other)
  Sender: FDA-Public Use
  Company Number: AUR-APL-2014-06107

PATIENT
  Age: 38 Year
  Sex: Female
  Weight: 94 kg

DRUGS (4)
  1. MIRTAZAPINE 15MG (MIRTAZAPINE) UNKNOWN, 15MG [Suspect]
     Active Substance: MIRTAZAPINE
     Indication: DEPRESSION
     Dates: start: 20140502
  2. VENLAFAXINE [Suspect]
     Active Substance: VENLAFAXINE HYDROCHLORIDE
     Indication: DEPRESSION
     Dates: start: 201205
  3. CERAZETTE /00011001/ (CEFALORIDINE) [Concomitant]
  4. METOPROLOL [Concomitant]
     Active Substance: METOPROLOL

REACTIONS (7)
  - Hypertension [None]
  - Serotonin syndrome [None]
  - Agitation [None]
  - Anxiety [None]
  - Psychotic disorder [None]
  - Drug interaction [None]
  - Aggression [None]

NARRATIVE: CASE EVENT DATE: 20140510
